FAERS Safety Report 6781163-X (Version None)
Quarter: 2010Q2

REPORT INFORMATION
  Report Type: 
  Country: None (occurrence: None)
  Receive Date: 20100621
  Receipt Date: 20100611
  Transmission Date: 20101027
  Serious: Yes (Other)
  Sender: FDA-Public Use
  Company Number: GB-BRISTOL-MYERS SQUIBB COMPANY-15134893

PATIENT
  Sex: Male

DRUGS (3)
  1. PRAVASTATIN SODIUM [Suspect]
     Dosage: 8,9,10 MAR
  2. CRESTOR [Concomitant]
     Dates: start: 20100109
  3. ZOCOR [Concomitant]
     Dates: start: 20030101

REACTIONS (4)
  - HYPERSENSITIVITY [None]
  - MUSCLE ATROPHY [None]
  - PAIN IN EXTREMITY [None]
  - RESTLESS LEGS SYNDROME [None]
